FAERS Safety Report 14273290 (Version 4)
Quarter: 2018Q1

REPORT INFORMATION
  Report Type: Spontaneous
  Country: FR (occurrence: FR)
  Receive Date: 20171211
  Receipt Date: 20180315
  Transmission Date: 20180508
  Serious: Yes (Hospitalization)
  Sender: FDA-Public Use
  Company Number: FR-OTSUKA-2015_018135

PATIENT
  Sex: Female

DRUGS (21)
  1. SEROPLEX [Suspect]
     Active Substance: ESCITALOPRAM OXALATE
     Indication: BIPOLAR DISORDER
     Dosage: 10 MG, QD
     Route: 048
     Dates: start: 201202
  2. SEROPLEX [Suspect]
     Active Substance: ESCITALOPRAM OXALATE
     Indication: ATTENTION DEFICIT/HYPERACTIVITY DISORDER
  3. XEROQUEL [Suspect]
     Active Substance: QUETIAPINE FUMARATE
     Indication: PSYCHOMOTOR HYPERACTIVITY
  4. LAROXYL [Suspect]
     Active Substance: AMITRIPTYLINE HYDROCHLORIDE
     Indication: ATTENTION DEFICIT/HYPERACTIVITY DISORDER
  5. ABILIFY [Suspect]
     Active Substance: ARIPIPRAZOLE
     Indication: ATTENTION DEFICIT/HYPERACTIVITY DISORDER
  6. RITALINE [Suspect]
     Active Substance: METHYLPHENIDATE HYDROCHLORIDE
     Indication: PSYCHOMOTOR HYPERACTIVITY
  7. XEROQUEL [Suspect]
     Active Substance: QUETIAPINE FUMARATE
     Indication: BIPOLAR DISORDER
     Dosage: 400 MG, QD
     Route: 048
     Dates: start: 201206
  8. LAROXYL [Suspect]
     Active Substance: AMITRIPTYLINE HYDROCHLORIDE
     Indication: PSYCHOMOTOR HYPERACTIVITY
  9. LEPTICUR [Suspect]
     Active Substance: TROPATEPINE HYDROCHLORIDE
     Indication: ATTENTION DEFICIT/HYPERACTIVITY DISORDER
  10. LEPTICUR [Suspect]
     Active Substance: TROPATEPINE HYDROCHLORIDE
     Indication: PSYCHOMOTOR HYPERACTIVITY
  11. XEROQUEL [Suspect]
     Active Substance: QUETIAPINE FUMARATE
     Indication: ATTENTION DEFICIT/HYPERACTIVITY DISORDER
  12. SEROPLEX [Suspect]
     Active Substance: ESCITALOPRAM OXALATE
     Indication: PSYCHOMOTOR HYPERACTIVITY
  13. ABILIFY [Suspect]
     Active Substance: ARIPIPRAZOLE
     Indication: PSYCHOMOTOR HYPERACTIVITY
  14. RITALINE [Suspect]
     Active Substance: METHYLPHENIDATE HYDROCHLORIDE
     Indication: ATTENTION DEFICIT/HYPERACTIVITY DISORDER
     Dosage: 110 MG, QD (80 MG IN THE MORNING AND 20 MG)
     Route: 048
     Dates: start: 201505
  15. LEXAPRO [Suspect]
     Active Substance: ESCITALOPRAM OXALATE
     Indication: ATTENTION DEFICIT/HYPERACTIVITY DISORDER
  16. LEXAPRO [Suspect]
     Active Substance: ESCITALOPRAM OXALATE
     Indication: PSYCHOMOTOR HYPERACTIVITY
  17. ABILIFY [Suspect]
     Active Substance: ARIPIPRAZOLE
     Indication: BIPOLAR DISORDER
     Dosage: 15 MG, QD
     Route: 048
     Dates: start: 201206
  18. LEPTICUR [Suspect]
     Active Substance: TROPATEPINE HYDROCHLORIDE
     Indication: BIPOLAR DISORDER
     Dosage: 15 MG, UNK
     Route: 065
     Dates: start: 201311, end: 20150216
  19. RITALINE [Suspect]
     Active Substance: METHYLPHENIDATE HYDROCHLORIDE
     Indication: BIPOLAR DISORDER
     Dosage: 100 MG, (80 MG IN THE MORNING AND 20 MG)
     Route: 048
     Dates: start: 201302, end: 201502
  20. LAROXYL [Suspect]
     Active Substance: AMITRIPTYLINE HYDROCHLORIDE
     Indication: BIPOLAR DISORDER
     Dosage: UNK
     Route: 065
  21. LEXAPRO [Suspect]
     Active Substance: ESCITALOPRAM OXALATE
     Indication: BIPOLAR DISORDER
     Dosage: 10 MG, QD
     Route: 048
     Dates: start: 201202

REACTIONS (5)
  - Cyanosis [Not Recovered/Not Resolved]
  - Raynaud^s phenomenon [Not Recovered/Not Resolved]
  - Product use in unapproved indication [Unknown]
  - Axonal neuropathy [Not Recovered/Not Resolved]
  - Livedo reticularis [Not Recovered/Not Resolved]

NARRATIVE: CASE EVENT DATE: 2014
